FAERS Safety Report 8530563-6 (Version None)
Quarter: 2012Q3

REPORT INFORMATION
  Report Type: 
  Country: None (occurrence: None)
  Receive Date: 20120723
  Receipt Date: 20120713
  Transmission Date: 20120928
  Serious: Yes (Hospitalization)
  Sender: FDA-Public Use
  Company Number: JP-UCBSA-060977

PATIENT
  Age: 62 Year
  Sex: Female
  Weight: 44 kg

DRUGS (3)
  1. ASPIRIN [Concomitant]
     Indication: PROPHYLAXIS
     Dosage: DAILY DOSE: 100 MG
     Route: 048
     Dates: end: 20120228
  2. KEPPRA [Suspect]
     Indication: PARTIAL SEIZURES WITH SECONDARY GENERALISATION
     Route: 048
     Dates: start: 20120218
  3. ZONISAMIDE [Concomitant]
     Indication: PARTIAL SEIZURES WITH SECONDARY GENERALISATION
     Dosage: DAILY DOSE: 200 MG
     Route: 048
     Dates: end: 20120228

REACTIONS (1)
  - THERMAL BURN [None]
